FAERS Safety Report 7222649-3 (Version None)
Quarter: 2011Q1

REPORT INFORMATION
  Report Type: 
  Country: None (occurrence: None)
  Receive Date: 20110106
  Receipt Date: 20110106
  Transmission Date: 20110831
  Serious: No
  Sender: FDA-Public Use
  Company Number: None

PATIENT
  Sex: Female
  Weight: 72.5755 kg

DRUGS (1)
  1. CELEBREX [Suspect]
     Indication: INFLAMMATION
     Dosage: 200MG MORNING
     Dates: start: 20020101, end: 20100101

REACTIONS (1)
  - COUGH [None]
